FAERS Safety Report 9297039 (Version 1)
Quarter: 2013Q2

REPORT INFORMATION
  Report Type: Spontaneous
  Country: CZ (occurrence: CZ)
  Receive Date: 20130518
  Receipt Date: 20130518
  Transmission Date: 20140414
  Serious: Yes (Other)
  Sender: FDA-Public Use
  Company Number: CZ-ROXANE LABORATORIES, INC.-2013-RO-00783RO

PATIENT
  Age: 46 Year
  Sex: Male

DRUGS (13)
  1. PREDNISONE [Suspect]
     Indication: CASTLEMAN^S DISEASE
     Dosage: 100 MG
     Route: 048
     Dates: start: 200812, end: 200902
  2. DEXAMETHASONE [Suspect]
     Indication: CASTLEMAN^S DISEASE
     Dosage: 20 MG
     Route: 048
     Dates: start: 200903, end: 201001
  3. DEXAMETHASONE [Suspect]
     Dosage: 20 MG
     Route: 048
     Dates: start: 201004, end: 201007
  4. DEXAMETHASONE [Suspect]
     Dosage: 40 MG
     Route: 048
  5. CYCLOPHOSPHAMIDE TABLETS USP [Suspect]
     Indication: CASTLEMAN^S DISEASE
     Dosage: 50 MG
     Route: 048
     Dates: start: 200903, end: 201001
  6. CYCLOPHOSPHAMIDE TABLETS USP [Suspect]
     Dosage: 50 MG
     Route: 048
     Dates: start: 201004, end: 201007
  7. RITUXIMAB [Suspect]
     Indication: CASTLEMAN^S DISEASE
     Route: 042
     Dates: start: 200812, end: 200902
  8. CYCLOPHOSPHAMIDE [Suspect]
     Indication: CASTLEMAN^S DISEASE
     Route: 042
     Dates: start: 200812, end: 200902
  9. ADRIAMYCIN [Suspect]
     Indication: CASTLEMAN^S DISEASE
     Route: 042
     Dates: start: 200812, end: 200902
  10. VINCRISTINE [Suspect]
     Indication: CASTLEMAN^S DISEASE
     Route: 042
     Dates: start: 200812, end: 200902
  11. THALIDOMIDE [Suspect]
     Indication: CASTLEMAN^S DISEASE
     Dosage: 100 MG
     Route: 048
     Dates: start: 200903, end: 201001
  12. THALIDOMIDE [Suspect]
     Dosage: 100 MG
     Route: 048
     Dates: start: 201004, end: 201007
  13. TOCILIZUMAB [Suspect]
     Indication: CASTLEMAN^S DISEASE
     Route: 042
     Dates: start: 201001, end: 201003

REACTIONS (6)
  - Vasculitis [Unknown]
  - Oedema peripheral [Unknown]
  - Dyspepsia [Unknown]
  - Diabetes mellitus [Unknown]
  - Neuropathy peripheral [Unknown]
  - Cushing^s syndrome [Unknown]
